FAERS Safety Report 7361421-0 (Version None)
Quarter: 2011Q1

REPORT INFORMATION
  Report Type: 
  Country: None (occurrence: None)
  Receive Date: 20110309
  Receipt Date: 20110224
  Transmission Date: 20110831
  Serious: Yes (Hospitalization)
  Sender: FDA-Public Use
  Company Number: FK201100358

PATIENT
  Age: 55 Year
  Sex: Female

DRUGS (4)
  1. LEUCOVORIN (CALCIUM FOLINATE) (CALCIUM FOLINATE) [Concomitant]
  2. IRINOTECAN HYDROCHLORIDE [Suspect]
     Indication: COLON CANCER METASTATIC
     Dosage: 330 MG, EVERY 2 WEEKS, INTRAVENOUS
     Route: 042
     Dates: start: 20110208
  3. IRINOTECAN HYDROCHLORIDE [Suspect]
     Indication: COLON CANCER METASTATIC
     Dosage: 330 MG, EVERY 2 WEEKS, INTRAVENOUS
     Route: 042
     Dates: start: 20110223
  4. FLUOROURACIL [Concomitant]

REACTIONS (2)
  - ABDOMINAL PAIN [None]
  - EYE PAIN [None]
